FAERS Safety Report 17420813 (Version 3)
Quarter: 2020Q1

REPORT INFORMATION
  Report Type: Spontaneous
  Country: IT (occurrence: IT)
  Receive Date: 20200214
  Receipt Date: 20200226
  Transmission Date: 20200409
  Serious: Yes (Hospitalization)
  Sender: FDA-Public Use
  Company Number: NVSC2020IT040133

PATIENT
  Age: 19 Year
  Sex: Female

DRUGS (1)
  1. PARACETAMOL [Suspect]
     Active Substance: ACETAMINOPHEN
     Indication: INTENTIONAL SELF-INJURY
     Dosage: 20 G, TOTAL
     Route: 048
     Dates: start: 20191008

REACTIONS (2)
  - Substance abuse [Recovering/Resolving]
  - Analgesic drug level increased [Recovering/Resolving]

NARRATIVE: CASE EVENT DATE: 20191008
